FAERS Safety Report 23069577 (Version 1)
Quarter: 2023Q4

REPORT INFORMATION
  Report Type: Spontaneous
  Country: US (occurrence: US)
  Receive Date: 20231016
  Receipt Date: 20231016
  Transmission Date: 20240109
  Serious: Yes (Death, Life-Threatening, Other)
  Sender: FDA-Public Use
  Company Number: US-PFIZER INC-PV202300166185

PATIENT
  Age: 32 Year
  Sex: Male

DRUGS (4)
  1. SULFAMETHOXAZOLE\TRIMETHOPRIM [Suspect]
     Active Substance: SULFAMETHOXAZOLE\TRIMETHOPRIM
     Indication: Pneumocystis jirovecii pneumonia
     Dosage: 15 MG/KG, 2X/DAY
  2. CLINDAMYCIN PHOSPHATE [Suspect]
     Active Substance: CLINDAMYCIN PHOSPHATE
     Indication: Pneumocystis jirovecii pneumonia
     Dosage: 900 MG
  3. PRIMAQUINE [Suspect]
     Active Substance: PRIMAQUINE
     Indication: Pneumocystis jirovecii pneumonia
     Dosage: 0.3 MG, BASE/KG/DOSE
  4. PREDNISONE [Concomitant]
     Active Substance: PREDNISONE
     Dosage: 40 MG, 2X/DAY

REACTIONS (1)
  - Drug ineffective [Fatal]
